FAERS Safety Report 23084236 (Version 3)
Quarter: 2023Q4

REPORT INFORMATION
  Report Type: Spontaneous
  Country: US (occurrence: US)
  Receive Date: 20231019
  Receipt Date: 20231212
  Transmission Date: 20240109
  Serious: No
  Sender: FDA-Public Use
  Company Number: US-PFIZER INC-202300331459

PATIENT
  Sex: Female

DRUGS (3)
  1. ZAVZPRET [Suspect]
     Active Substance: ZAVEGEPANT HYDROCHLORIDE
     Indication: Back pain
     Dosage: UNK
     Route: 045
  2. ZAVZPRET [Suspect]
     Active Substance: ZAVEGEPANT HYDROCHLORIDE
     Indication: Migraine
  3. SULFAMETHOXAZOLE\TRIMETHOPRIM [Concomitant]
     Active Substance: SULFAMETHOXAZOLE\TRIMETHOPRIM
     Indication: Back pain
     Dosage: UNK

REACTIONS (4)
  - Drug ineffective [Unknown]
  - Hypersomnia [Unknown]
  - Nausea [Unknown]
  - Dysgeusia [Unknown]
